FAERS Safety Report 7210579-2 (Version None)
Quarter: 2011Q1

REPORT INFORMATION
  Report Type: 
  Country: None (occurrence: None)
  Receive Date: 20110105
  Receipt Date: 20101224
  Transmission Date: 20110831
  Serious: Yes (Hospitalization)
  Sender: FDA-Public Use
  Company Number: PHHO2010IT15176

PATIENT
  Sex: Male
  Weight: 58 kg

DRUGS (2)
  1. CERTICAN [Suspect]
     Indication: RENAL TRANSPLANT
     Dosage: 0.75 MG, BID
     Route: 048
     Dates: start: 20100930, end: 20101013
  2. NEORAL [Suspect]
     Indication: RENAL TRANSPLANT
     Dosage: 350 MG/DAY
     Route: 048
     Dates: start: 20100930

REACTIONS (5)
  - ANURIA [None]
  - HAEMATOMA EVACUATION [None]
  - RENAL TUBULAR NECROSIS [None]
  - RENAL IMPAIRMENT [None]
  - RENAL HAEMATOMA [None]
